FAERS Safety Report 24860033 (Version 1)
Quarter: 2025Q1

REPORT INFORMATION
  Report Type: Spontaneous
  Country: AU (occurrence: AU)
  Receive Date: 20250119
  Receipt Date: 20250119
  Transmission Date: 20250409
  Serious: Yes (Other)
  Sender: ALKEM
  Company Number: AU-ALKEM LABORATORIES LIMITED-AU-ALKEM-2025-00098

PATIENT
  Age: 15 Year
  Sex: Female

DRUGS (3)
  1. AMLODIPINE BESYLATE [Suspect]
     Active Substance: AMLODIPINE BESYLATE
     Indication: Product used for unknown indication
     Route: 065
  2. LUTETIUM OXODOTREOTIDE LU-177 [Suspect]
     Active Substance: LUTETIUM OXODOTREOTIDE LU-177
     Indication: Product used for unknown indication
     Route: 065
  3. SUNITINIB [Suspect]
     Active Substance: SUNITINIB
     Indication: Product used for unknown indication
     Route: 065

REACTIONS (9)
  - Ascites [Unknown]
  - Renal failure [Unknown]
  - Bone lesion [Unknown]
  - Hyperaesthesia [Unknown]
  - Lethargy [Unknown]
  - Pleural effusion [Unknown]
  - Malaise [Unknown]
  - Nausea [Unknown]
  - Drug ineffective [Unknown]
